FAERS Safety Report 5595968-4 (Version None)
Quarter: 2008Q1

REPORT INFORMATION
  Report Type: 
  Country: None (occurrence: None)
  Receive Date: 20080118
  Receipt Date: 20080109
  Transmission Date: 20080703
  Serious: Yes (Other)
  Sender: FDA-Public Use
  Company Number: AR-ABBOTT-07P-007-0431024-00

PATIENT
  Age: 47 Year
  Sex: Female
  Weight: 78 kg

DRUGS (4)
  1. HUMIRA [Suspect]
     Indication: CROHN'S DISEASE
     Route: 058
     Dates: start: 20070301
  2. HUMIRA [Suspect]
     Indication: UVEITIS
  3. HUMIRA [Suspect]
     Indication: SACROILIITIS
  4. MERCAPTOPURINE [Concomitant]
     Indication: CROHN'S DISEASE
     Route: 048
     Dates: start: 20061201

REACTIONS (1)
  - NEOPLASM MALIGNANT [None]
